FAERS Safety Report 9640539 (Version 1)
Quarter: 2013Q4

REPORT INFORMATION
  Report Type: Report from Study
  Country: US (occurrence: US)
  Receive Date: 20131023
  Receipt Date: 20131023
  Transmission Date: 20140711
  Serious: No
  Sender: FDA-Public Use
  Company Number: US-ABBVIE-13P-163-1062945-00

PATIENT
  Age: 26 Year
  Sex: Female
  Weight: 61.29 kg

DRUGS (1)
  1. LUPRON DEPOT [Suspect]
     Indication: ENDOMETRIOSIS
     Route: 030
     Dates: start: 20130207

REACTIONS (8)
  - Abdominal pain [Unknown]
  - Endometriosis [Unknown]
  - Weight decreased [Unknown]
  - Tremor [Recovered/Resolved]
  - Hot flush [Not Recovered/Not Resolved]
  - Nausea [Unknown]
  - Vomiting [Unknown]
  - Nausea [Not Recovered/Not Resolved]
